FAERS Safety Report 13471355 (Version 5)
Quarter: 2018Q1

REPORT INFORMATION
  Report Type: Spontaneous
  Country: US (occurrence: US)
  Receive Date: 20170424
  Receipt Date: 20180115
  Transmission Date: 20180508
  Serious: Yes (Congenital Anomaly, Other)
  Sender: FDA-Public Use
  Company Number: PHEH2017US011732

PATIENT
  Sex: Male

DRUGS (1)
  1. ZOFRAN [Suspect]
     Active Substance: ONDANSETRON HYDROCHLORIDE
     Indication: FOETAL EXPOSURE DURING PREGNANCY
     Dosage: MOTHER DOSE: 4 MG, TID
     Route: 064

REACTIONS (16)
  - Strabismus [Unknown]
  - Gastroenteritis [Unknown]
  - Coarctation of the aorta [Unknown]
  - Foetal exposure during pregnancy [Unknown]
  - Diarrhoea [Unknown]
  - Haematochezia [Unknown]
  - Constipation [Unknown]
  - Pyrexia [Unknown]
  - Abdominal pain upper [Unknown]
  - Rhinitis allergic [Unknown]
  - Cough [Unknown]
  - Dermatitis atopic [Unknown]
  - Asthma [Unknown]
  - Rhinorrhoea [Unknown]
  - Injury [Unknown]
  - Viral infection [Unknown]
